FAERS Safety Report 4715547-8 (Version None)
Quarter: 2005Q3

REPORT INFORMATION
  Report Type: 
  Country: None (occurrence: None)
  Receive Date: 20050713
  Receipt Date: 20050706
  Transmission Date: 20060218
  Serious: Yes (Hospitalization)
  Sender: FDA-Public Use
  Company Number: 200512623BCC

PATIENT
  Age: 72 Year
  Sex: Male
  Weight: 86.1834 kg

DRUGS (3)
  1. ASPIRIN [Suspect]
     Indication: THROMBOSIS PROPHYLAXIS
     Dosage: 162 MG, QD, ORAL
     Route: 048
  2. HIGH BLOOD PRESSUR MEDICATION [Concomitant]
  3. CHOLESTEROM MEDICATION [Concomitant]

REACTIONS (4)
  - BLOOD POTASSIUM DECREASED [None]
  - BLOOD PRESSURE SYSTOLIC INCREASED [None]
  - CONDITION AGGRAVATED [None]
  - HEART RATE IRREGULAR [None]
